FAERS Safety Report 19654161 (Version 2)
Quarter: 2021Q3

REPORT INFORMATION
  Report Type: Spontaneous
  Country: US (occurrence: US)
  Receive Date: 20210804
  Receipt Date: 20210907
  Transmission Date: 20211014
  Serious: Yes (Other)
  Sender: FDA-Public Use
  Company Number: US-ABBVIE-21K-163-4017767-00

PATIENT
  Age: 59 Year
  Sex: Male

DRUGS (4)
  1. LUPRON DEPOT [Suspect]
     Active Substance: LEUPROLIDE ACETATE
     Indication: PRODUCT USED FOR UNKNOWN INDICATION
     Route: 065
  2. XTANDI [Suspect]
     Active Substance: ENZALUTAMIDE
     Indication: PROSTATE CANCER
     Route: 048
     Dates: start: 20200408, end: 202004
  3. XTANDI [Suspect]
     Active Substance: ENZALUTAMIDE
     Route: 048
     Dates: start: 20200427
  4. XTANDI [Suspect]
     Active Substance: ENZALUTAMIDE
     Route: 048
     Dates: start: 202105

REACTIONS (9)
  - Gastrointestinal pain [Unknown]
  - Muscular weakness [Unknown]
  - Gastrointestinal motility disorder [Unknown]
  - Myalgia [Unknown]
  - Arthralgia [Unknown]
  - Hot flush [Unknown]
  - Bladder spasm [Unknown]
  - Diarrhoea haemorrhagic [Unknown]
  - Fatigue [Unknown]

NARRATIVE: CASE EVENT DATE: 202004
